FAERS Safety Report 26013532 (Version 1)
Quarter: 2025Q4

REPORT INFORMATION
  Report Type: Report from Study
  Country: US (occurrence: US)
  Receive Date: 20251107
  Receipt Date: 20251107
  Transmission Date: 20260118
  Serious: Yes (Other)
  Sender: ALEXION PHARMACEUTICALS
  Company Number: US-ALXN-202404USA000989US

PATIENT
  Age: 13 Year
  Sex: Male

DRUGS (1)
  1. STRENSIQ [Suspect]
     Active Substance: ASFOTASE ALFA
     Indication: Phosphorus metabolism disorder
     Dosage: 80 MILLIGRAM, TID (ROTATE INJECTION SITES)
     Route: 065

REACTIONS (10)
  - Deafness neurosensory [Unknown]
  - Injection site bruising [Unknown]
  - Abdominal discomfort [Unknown]
  - Treatment noncompliance [Unknown]
  - Injection site swelling [Unknown]
  - Pain in extremity [Unknown]
  - Injection site pain [Unknown]
  - Vertigo [Unknown]
  - Dizziness [Unknown]
  - Temperature intolerance [Unknown]
